FAERS Safety Report 22373566 (Version 2)
Quarter: 2023Q2

REPORT INFORMATION
  Report Type: Spontaneous
  Country: US (occurrence: US)
  Receive Date: 20230526
  Receipt Date: 20230530
  Transmission Date: 20230721
  Serious: No
  Sender: FDA-Public Use
  Company Number: US-002147023-NVSC2023US117552

PATIENT
  Sex: Female

DRUGS (2)
  1. NEOMYCIN AND POLYMYXIN B SULFATES AND DEXAMETHASONE [Suspect]
     Active Substance: DEXAMETHASONE\NEOMYCIN SULFATE\POLYMYXIN B SULFATE
     Indication: Product used for unknown indication
     Dosage: 10 ML (1 TIME, ROUTE: DROPS)
     Route: 065
     Dates: start: 20230403, end: 20230403
  2. AMOXICILLIN\CLAVULANIC ACID [Concomitant]
     Active Substance: AMOXICILLIN\CLAVULANIC ACID
     Indication: Product used for unknown indication
     Dosage: 125 MG (1X10 DAYS, ROUTE: TABLET)
     Route: 065

REACTIONS (8)
  - Ear haemorrhage [Unknown]
  - Throat irritation [Unknown]
  - Oropharyngeal pain [Unknown]
  - Adverse reaction [Unknown]
  - Pharyngeal hypoaesthesia [Unknown]
  - Product taste abnormal [Unknown]
  - Otorrhoea [Unknown]
  - Accidental exposure to product [Unknown]
